FAERS Safety Report 5022111-2 (Version None)
Quarter: 2006Q2

REPORT INFORMATION
  Report Type: 
  Country: None (occurrence: None)
  Receive Date: 20060609
  Receipt Date: 20060601
  Transmission Date: 20061013
  Serious: Yes (Hospitalization)
  Sender: FDA-Public Use
  Company Number: US-JNJFOC-20051005925

PATIENT
  Sex: Male
  Weight: 59.88 kg

DRUGS (21)
  1. REMICADE [Suspect]
     Indication: RHEUMATOID ARTHRITIS
     Route: 042
     Dates: start: 20030109, end: 20040204
  2. ASPIRIN [Concomitant]
  3. CALCIUM GLUCONATE [Concomitant]
  4. FOLIC ACID [Concomitant]
  5. HYDROCODONE [Concomitant]
  6. METHOTREXATE [Concomitant]
  7. MULTI-VITAMIN [Concomitant]
  8. MULTI-VITAMIN [Concomitant]
  9. MULTI-VITAMIN [Concomitant]
  10. MULTI-VITAMIN [Concomitant]
  11. MULTI-VITAMIN [Concomitant]
  12. MULTI-VITAMIN [Concomitant]
  13. MULTI-VITAMIN [Concomitant]
  14. MULTI-VITAMIN [Concomitant]
  15. NAPROXEN [Concomitant]
  16. PEPCID [Concomitant]
  17. PREDNISONE [Concomitant]
  18. SIMVASTATIN [Concomitant]
  19. ACTONEL [Concomitant]
  20. LOSARTAN POTASSIUM [Concomitant]
  21. REMERON [Concomitant]

REACTIONS (6)
  - ABSCESS SOFT TISSUE [None]
  - IMPAIRED HEALING [None]
  - LEG AMPUTATION [None]
  - PERIPHERAL VASCULAR DISORDER [None]
  - SKIN ULCER [None]
  - SOFT TISSUE NECROSIS [None]
